FAERS Safety Report 7373747-5 (Version None)
Quarter: 2011Q1

REPORT INFORMATION
  Report Type: 
  Country: None (occurrence: None)
  Receive Date: 20110325
  Receipt Date: 20110316
  Transmission Date: 20110831
  Serious: Yes (Hospitalization)
  Sender: FDA-Public Use
  Company Number: US-JNJFOC-20101109015

PATIENT
  Sex: Male
  Weight: 104.1 kg

DRUGS (12)
  1. FOLIC ACID [Concomitant]
     Route: 048
  2. NIACIN [Concomitant]
     Route: 048
  3. NIFIDINE [Concomitant]
     Route: 048
  4. WELCHOL [Concomitant]
     Route: 048
  5. PLACEBO [Suspect]
     Indication: RHEUMATOID ARTHRITIS
     Route: 058
  6. ASPIRIN [Concomitant]
     Route: 048
  7. GOLIMUMAB [Suspect]
     Indication: RHEUMATOID ARTHRITIS
     Route: 058
  8. GOLIMUMAB [Suspect]
     Route: 058
  9. ZETIA [Concomitant]
     Route: 048
  10. TOPROL-XL [Concomitant]
     Route: 048
  11. PROTONIX [Concomitant]
     Route: 048
  12. METHOTREXATE [Concomitant]
     Route: 048

REACTIONS (4)
  - ADRENAL INSUFFICIENCY [None]
  - SEPSIS [None]
  - CHOLECYSTITIS [None]
  - RENAL TUBULAR NECROSIS [None]
